FAERS Safety Report 8379124-2 (Version None)
Quarter: 2012Q2

REPORT INFORMATION
  Report Type: 
  Country: None (occurrence: None)
  Receive Date: 20120523
  Receipt Date: 20120517
  Transmission Date: 20120825
  Serious: Yes (Other)
  Sender: FDA-Public Use
  Company Number: US-PFIZER INC-2012121263

PATIENT
  Sex: Male

DRUGS (4)
  1. ACCURETIC [Suspect]
     Dosage: UNK
  2. NEURONTIN [Suspect]
     Dosage: UNK
  3. CELEBREX [Suspect]
     Dosage: UNK
  4. VIAGRA [Suspect]
     Dosage: UNK

REACTIONS (1)
  - BLOOD PRESSURE INCREASED [None]
